FAERS Safety Report 7508189-2 (Version None)
Quarter: 2011Q2

REPORT INFORMATION
  Report Type: 
  Country: None (occurrence: None)
  Receive Date: 20110527
  Receipt Date: 20110525
  Transmission Date: 20111010
  Serious: Yes (Death)
  Sender: FDA-Public Use
  Company Number: US-PFIZER INC-2011113928

PATIENT

DRUGS (1)
  1. KETAMINE HCL [Suspect]

REACTIONS (1)
  - DEATH [None]
